FAERS Safety Report 16659791 (Version 2)
Quarter: 2019Q3

REPORT INFORMATION
  Report Type: Report from Study
  Country: None (occurrence: US)
  Receive Date: 20190802
  Receipt Date: 20190809
  Transmission Date: 20191004
  Serious: Yes (Hospitalization)
  Sender: FDA-Public Use
  Company Number: US-ABBVIE-19K-163-2875330-00

PATIENT
  Age: 49 Year
  Sex: Male
  Weight: 76.6 kg

DRUGS (2)
  1. HUMIRA [Suspect]
     Active Substance: ADALIMUMAB
     Indication: CROHN^S DISEASE
     Route: 058
  2. PREDNISONE. [Concomitant]
     Active Substance: PREDNISONE
     Indication: CROHN^S DISEASE

REACTIONS (3)
  - Nausea [Unknown]
  - Crohn^s disease [Not Recovered/Not Resolved]
  - Decreased appetite [Unknown]

NARRATIVE: CASE EVENT DATE: 201907
